FAERS Safety Report 13911512 (Version 1)
Quarter: 2017Q3

REPORT INFORMATION
  Report Type: Spontaneous
  Country: US (occurrence: US)
  Receive Date: 20170828
  Receipt Date: 20170828
  Transmission Date: 20171127
  Serious: No
  Sender: FDA-Public Use
  Company Number: US-ROCHE-1141948

PATIENT
  Age: 10 Year
  Sex: Male

DRUGS (1)
  1. NUTROPIN [Suspect]
     Active Substance: SOMATROPIN
     Indication: PRADER-WILLI SYNDROME
     Route: 065

REACTIONS (2)
  - Blood insulin increased [Unknown]
  - Scoliosis [Unknown]

NARRATIVE: CASE EVENT DATE: 20000228
